FAERS Safety Report 10056884 (Version 1)
Quarter: 2014Q2

REPORT INFORMATION
  Report Type: Spontaneous
  Country: AU (occurrence: AU)
  Receive Date: 20140403
  Receipt Date: 20140403
  Transmission Date: 20141212
  Serious: Yes (Other)
  Sender: FDA-Public Use
  Company Number: AU-MYLANLABS-2014S1006809

PATIENT
  Sex: 0

DRUGS (2)
  1. GABAPENTIN [Suspect]
     Indication: SLEEP APNOEA SYNDROME
     Route: 065
  2. GABAPENTIN [Suspect]
     Indication: OFF LABEL USE
     Route: 065

REACTIONS (1)
  - Respiratory depression [Unknown]
